FAERS Safety Report 12536551 (Version 1)
Quarter: 2016Q3

REPORT INFORMATION
  Report Type: Spontaneous
  Country: US (occurrence: US)
  Receive Date: 20160707
  Receipt Date: 20160707
  Transmission Date: 20161109
  Serious: No
  Sender: FDA-Public Use
  Company Number: US-PFIZER INC-2016323139

PATIENT
  Sex: Male

DRUGS (1)
  1. LYRICA [Suspect]
     Active Substance: PREGABALIN
     Indication: POST HERPETIC NEURALGIA
     Dosage: UNK

REACTIONS (7)
  - Hypoacusis [Unknown]
  - Vision blurred [Unknown]
  - Headache [Unknown]
  - Gastric disorder [Unknown]
  - Nausea [Unknown]
  - Anxiety [Unknown]
  - Tinnitus [Unknown]
